FAERS Safety Report 10396660 (Version 4)
Quarter: 2014Q3

REPORT INFORMATION
  Report Type: Spontaneous
  Country: FI (occurrence: FI)
  Receive Date: 20140820
  Receipt Date: 20140924
  Transmission Date: 20150326
  Serious: Yes (Hospitalization)
  Sender: FDA-Public Use
  Company Number: FI-B.I. PHARMACEUTICALS,INC./RIDGEFIELD-2014-BI-38392SF

PATIENT
  Age: 76 Year
  Sex: Female

DRUGS (2)
  1. TRADJENTA [Suspect]
     Active Substance: LINAGLIPTIN
     Indication: TYPE 2 DIABETES MELLITUS
     Dosage: 5 MG
     Route: 065
     Dates: start: 20140201
  2. LINATIL [Concomitant]
     Indication: HYPERTENSION
     Route: 065

REACTIONS (3)
  - Stress cardiomyopathy [Unknown]
  - Angina pectoris [Unknown]
  - Stress [Unknown]

NARRATIVE: CASE EVENT DATE: 20140814
